FAERS Safety Report 8224676-6 (Version None)
Quarter: 2012Q1

REPORT INFORMATION
  Report Type: 
  Country: None (occurrence: None)
  Receive Date: 20120321
  Receipt Date: 20120319
  Transmission Date: 20120608
  Serious: Yes (Hospitalization)
  Sender: FDA-Public Use
  Company Number: SK-BAYER-2011-122528

PATIENT
  Age: 82 Year
  Sex: Male
  Weight: 62 kg

DRUGS (11)
  1. AGAPURIN RETARD [Concomitant]
     Indication: MICROANGIOPATHY
     Dosage: DAILY DOSE 600 MG
     Route: 048
     Dates: end: 20110101
  2. URSO FALK [Concomitant]
     Indication: UNEVALUABLE EVENT
  3. NEXAVAR [Suspect]
     Indication: HEPATIC NEOPLASM MALIGNANT
     Dosage: DAILY DOSE 800 MG
     Route: 048
     Dates: start: 20100708, end: 20100920
  4. FUROSEMIDE [Concomitant]
     Indication: HYPERTENSION
  5. NOLIPREL [INDAPAMIDE,PERINDOPRIL ERBUMINE] [Concomitant]
     Indication: HYPERTENSION
     Dosage: 2.5 / 0.625MG
     Route: 048
     Dates: end: 20110101
  6. LAGOSA [Concomitant]
     Indication: HEPATIC NEOPLASM MALIGNANT
     Dosage: DAILY DOSE 500 MG
     Dates: start: 20100505
  7. URSO FALK [Concomitant]
     Indication: HEPATIC NEOPLASM MALIGNANT
     Dosage: DAILY DOSE 1500 MG
     Route: 048
     Dates: start: 20100505, end: 20110101
  8. FUROSEMIDE [Concomitant]
     Indication: HEPATIC NEOPLASM MALIGNANT
     Dosage: DAILY DOSE 40 MG
     Route: 048
     Dates: start: 20100505, end: 20110101
  9. CORONAL [Concomitant]
     Indication: HYPERTENSION
     Dosage: DAILY DOSE 5 MG
     Route: 048
     Dates: start: 20000101, end: 20110101
  10. NEXAVAR [Suspect]
     Dosage: DAILY DOSE 400 MG
     Route: 048
     Dates: start: 20100930, end: 20110203
  11. LAGOSA [Concomitant]
     Indication: UNEVALUABLE EVENT
     Dosage: DAILY DOSE 1000 MG
     Route: 048
     Dates: end: 20110101

REACTIONS (1)
  - CELLULITIS [None]
